FAERS Safety Report 23132835 (Version 1)
Quarter: 2023Q4

REPORT INFORMATION
  Report Type: Spontaneous
  Country: US (occurrence: US)
  Receive Date: 20231101
  Receipt Date: 20231101
  Transmission Date: 20240109
  Serious: No
  Sender: FDA-Public Use
  Company Number: US-JNJFOC-20231069238

PATIENT
  Age: 38 Year
  Sex: Female

DRUGS (8)
  1. TYLENOL [Suspect]
     Active Substance: ACETAMINOPHEN
     Indication: Arthralgia
     Route: 065
     Dates: start: 202309
  2. TYLENOL [Suspect]
     Active Substance: ACETAMINOPHEN
     Indication: Headache
  3. TYLENOL [Suspect]
     Active Substance: ACETAMINOPHEN
     Indication: Pain in extremity
  4. TYLENOL [Suspect]
     Active Substance: ACETAMINOPHEN
     Indication: Back pain
  5. ORENITRAM [Concomitant]
     Active Substance: TREPROSTINIL
     Indication: Pulmonary arterial hypertension
     Dosage: 2 MG
     Route: 048
     Dates: start: 202309
  6. ORENITRAM [Concomitant]
     Active Substance: TREPROSTINIL
     Dosage: 3 MG
     Route: 048
     Dates: start: 202309
  7. ORENITRAM [Concomitant]
     Active Substance: TREPROSTINIL
     Route: 048
     Dates: start: 20230903
  8. TOPAMAX [Concomitant]
     Active Substance: TOPIRAMATE
     Indication: Pain in extremity
     Route: 065
     Dates: start: 202309

REACTIONS (1)
  - Product use in unapproved indication [Unknown]

NARRATIVE: CASE EVENT DATE: 20230901
